FAERS Safety Report 14451263 (Version 1)
Quarter: 2018Q1

REPORT INFORMATION
  Report Type: Spontaneous
  Country: US (occurrence: US)
  Receive Date: 20180126
  Receipt Date: 20180126
  Transmission Date: 20180509
  Serious: Yes (Life-Threatening)
  Sender: FDA-Public Use
  Company Number: None

PATIENT
  Age: 71 Year
  Sex: Male
  Weight: 83.46 kg

DRUGS (1)
  1. PROTAMINE SULFATE. [Suspect]
     Active Substance: PROTAMINE SULFATE
     Indication: CARDIAC OPERATION
     Route: 042
     Dates: start: 20171211, end: 20171211

REACTIONS (2)
  - Swelling [None]
  - Cardiac failure [None]

NARRATIVE: CASE EVENT DATE: 20171211
